FAERS Safety Report 7641450-X (Version None)
Quarter: 2011Q3

REPORT INFORMATION
  Report Type: 
  Country: None (occurrence: None)
  Receive Date: 20110728
  Receipt Date: 20110725
  Transmission Date: 20111222
  Serious: Yes (Disabling)
  Sender: FDA-Public Use
  Company Number: GB-EISAI INC-E2090-01704-SPO-GB

PATIENT
  Age: 30 Year
  Sex: Male
  Weight: 68 kg

DRUGS (11)
  1. ZONISAMIDE [Suspect]
     Dosage: UNKNOWN
     Route: 048
     Dates: start: 20110713
  2. TEGRETOL [Concomitant]
     Dates: start: 20110512, end: 20110704
  3. ZONISAMIDE [Suspect]
     Dosage: UNKNOWN
     Route: 048
     Dates: start: 20110613, end: 20110614
  4. LACOSAMIDE [Concomitant]
     Dates: start: 20110426, end: 20110427
  5. VALPROATE SODIUM [Concomitant]
     Dates: start: 20110512, end: 20110704
  6. VALPROATE SODIUM [Concomitant]
     Dates: start: 20110712
  7. TEGRETOL [Concomitant]
     Dates: start: 20110408, end: 20110506
  8. TEGRETOL [Concomitant]
     Dates: start: 20110712
  9. LACOSAMIDE [Concomitant]
     Dates: start: 20110606, end: 20110607
  10. LACOSAMIDE [Concomitant]
     Dates: start: 20110512, end: 20110513
  11. VALPROATE SODIUM [Concomitant]
     Dates: start: 20110408, end: 20110506

REACTIONS (1)
  - BLINDNESS [None]
